FAERS Safety Report 8249020-X (Version None)
Quarter: 2012Q2

REPORT INFORMATION
  Report Type: 
  Country: None (occurrence: None)
  Receive Date: 20120402
  Receipt Date: 20120322
  Transmission Date: 20120825
  Serious: Yes (Other)
  Sender: FDA-Public Use
  Company Number: BR-BIOGENIDEC-2012BI010698

PATIENT
  Sex: Female

DRUGS (5)
  1. CORTISONE [Concomitant]
     Indication: MULTIPLE SCLEROSIS
  2. VITAMIN E [Concomitant]
     Indication: WEIGHT INCREASED
  3. AVONEX [Suspect]
     Indication: MULTIPLE SCLEROSIS
     Route: 030
     Dates: start: 20110913, end: 20120201
  4. CARBAMAZEPINE [Concomitant]
     Indication: EPILEPSY
  5. CARBAMAZEPINE [Concomitant]

REACTIONS (5)
  - ALANINE AMINOTRANSFERASE INCREASED [None]
  - MALAISE [None]
  - GASTRIC DISORDER [None]
  - HEPATIC CIRRHOSIS [None]
  - DECREASED APPETITE [None]
